FAERS Safety Report 17967192 (Version 1)
Quarter: 2020Q3

REPORT INFORMATION
  Report Type: Spontaneous
  Country: ES (occurrence: ES)
  Receive Date: 20200701
  Receipt Date: 20200701
  Transmission Date: 20201103
  Serious: Yes (Other)
  Sender: FDA-Public Use
  Company Number: ES-B.I. PHARMACEUTICALS,INC./RIDGEFIELD-2020-12-032579

PATIENT
  Age: 69 Year
  Sex: Female
  Weight: 98 kg

DRUGS (2)
  1. HUMULINA NPH [Concomitant]
     Active Substance: INSULIN HUMAN
     Indication: TYPE 2 DIABETES MELLITUS
     Dosage: 40UI EN LA CENA, 40UI EN EL DESAYUNO, 0UI EN LA COMIDA
     Route: 065
     Dates: start: 20170831
  2. SYNJARDY [Suspect]
     Active Substance: EMPAGLIFLOZIN\METFORMIN HYDROCHLORIDE
     Indication: TYPE 2 DIABETES MELLITUS
     Dosage: 1 COMPRIMIDO CADA 12 HORAS, 5MG/1000MG
     Route: 065
     Dates: start: 20181022

REACTIONS (2)
  - Skin ulcer [Not Recovered/Not Resolved]
  - Staphylococcal infection [Not Recovered/Not Resolved]

NARRATIVE: CASE EVENT DATE: 20200421
